FAERS Safety Report 7652324-2 (Version None)
Quarter: 2011Q3

REPORT INFORMATION
  Report Type: 
  Country: None (occurrence: None)
  Receive Date: 20110728
  Receipt Date: 20110718
  Transmission Date: 20111222
  Serious: Yes (Other)
  Sender: FDA-Public Use
  Company Number: 989886

PATIENT
  Age: 42 Year
  Sex: Female
  Weight: 101 kg

DRUGS (5)
  1. DURAMORPH PF [Concomitant]
  2. FENTANYL CITRATE [Concomitant]
  3. VITAMIN TAB [Concomitant]
  4. BUPIVACAINE HCL [Concomitant]
  5. SODIUM CHLORIDE [Suspect]
     Indication: PRODUCT USED FOR UNKNOWN INDICATION
     Dosage: 10 ML, INTRATHECAL

REACTIONS (11)
  - PARAESTHESIA [None]
  - TACHYPNOEA [None]
  - SPINAL HAEMATOMA [None]
  - NAUSEA [None]
  - ANAESTHETIC COMPLICATION [None]
  - RADICULAR PAIN [None]
  - TACHYCARDIA [None]
  - WRONG TECHNIQUE IN DRUG USAGE PROCESS [None]
  - HEADACHE [None]
  - BLOOD PRESSURE SYSTOLIC INCREASED [None]
  - HYPOAESTHESIA [None]
